FAERS Safety Report 21473394 (Version 1)
Quarter: 2022Q4

REPORT INFORMATION
  Report Type: Spontaneous
  Country: IN (occurrence: IN)
  Receive Date: 20221018
  Receipt Date: 20221018
  Transmission Date: 20230113
  Serious: Yes (Other)
  Sender: FDA-Public Use
  Company Number: IN-PFIZER INC-2019229969

PATIENT
  Age: 84 Year
  Sex: Female
  Weight: 57 kg

DRUGS (4)
  1. PALBOCICLIB [Suspect]
     Active Substance: PALBOCICLIB
     Indication: Breast cancer metastatic
     Dosage: 125 MG, CYCLIC (3 WEEKS ON AND 1 WEEK OFF)
     Route: 048
     Dates: start: 20190404
  2. PALBOCICLIB [Suspect]
     Active Substance: PALBOCICLIB
     Dosage: 100 MG, 1X/DAY
     Route: 048
  3. LETROZOLE [Concomitant]
     Active Substance: LETROZOLE
     Dosage: 2.5 MG, 1X/DAY (1-0-0 X 30 DAYS)
  4. LETROZOLE [Concomitant]
     Active Substance: LETROZOLE

REACTIONS (9)
  - Red blood cell sedimentation rate abnormal [Unknown]
  - Respiratory rate increased [Unknown]
  - Fatigue [Unknown]
  - Decreased appetite [Unknown]
  - Haemoglobin abnormal [Unknown]
  - White blood cell count abnormal [Unknown]
  - Neoplasm progression [Unknown]
  - Platelet count abnormal [Unknown]
  - Blood pressure systolic increased [Unknown]

NARRATIVE: CASE EVENT DATE: 20190101
